FAERS Safety Report 7600842-5 (Version None)
Quarter: 2011Q3

REPORT INFORMATION
  Report Type: 
  Country: None (occurrence: None)
  Receive Date: 20110711
  Receipt Date: 20110704
  Transmission Date: 20111222
  Serious: Yes (Death, Other)
  Sender: FDA-Public Use
  Company Number: DE-ACTELION-A-CH2011-50889

PATIENT
  Sex: Female
  Weight: 52 kg

DRUGS (1)
  1. TRACLEER [Suspect]
     Indication: SKIN ULCER
     Dosage: 62.5 MG, BID
     Route: 048
     Dates: start: 20070615, end: 20071205

REACTIONS (1)
  - SYSTEMIC SCLEROSIS [None]
